FAERS Safety Report 9647698 (Version 1)
Quarter: 2013Q4

REPORT INFORMATION
  Report Type: Spontaneous
  Country: US (occurrence: US)
  Receive Date: 20131028
  Receipt Date: 20131028
  Transmission Date: 20140711
  Serious: Yes (Hospitalization)
  Sender: FDA-Public Use
  Company Number: US-BRISTOL-MYERS SQUIBB COMPANY-19594878

PATIENT
  Age: 71 Year
  Sex: Male
  Weight: 85.71 kg

DRUGS (13)
  1. ELIQUIS [Suspect]
     Indication: ATRIAL FIBRILLATION
     Dosage: 1DF=2.5MG
     Dates: start: 2013
  2. ZETIA [Concomitant]
  3. ATORVASTATIN [Concomitant]
  4. CARVEDILOL [Concomitant]
  5. GABAPENTIN [Concomitant]
  6. NIACIN [Concomitant]
  7. BENAZEPRIL HCL [Concomitant]
  8. ULORIC [Concomitant]
  9. TAMSULOSIN [Concomitant]
  10. FUROSEMIDE [Concomitant]
  11. SPIRIVA [Concomitant]
  12. FLOVENT [Concomitant]
  13. ASPIRIN [Concomitant]

REACTIONS (4)
  - Cardiac failure congestive [Unknown]
  - Dry mouth [Recovered/Resolved]
  - Drug administration error [Unknown]
  - Contusion [Unknown]
